FAERS Safety Report 6897951-5 (Version None)
Quarter: 2010Q3

REPORT INFORMATION
  Report Type: 
  Country: None (occurrence: None)
  Receive Date: 20100802
  Receipt Date: 20070801
  Transmission Date: 20110219
  Serious: No
  Sender: FDA-Public Use
  Company Number: US-PFIZER INC-2007065604

PATIENT
  Sex: Female
  Weight: 70.454 kg

DRUGS (4)
  1. LYRICA [Suspect]
     Indication: PAIN MANAGEMENT
     Route: 048
     Dates: start: 20060801
  2. EFFEXOR [Concomitant]
     Indication: DEPRESSION
     Route: 048
  3. IBUPROFEN [Concomitant]
     Route: 048
  4. ALEVE (CAPLET) [Concomitant]
     Route: 048

REACTIONS (4)
  - MEMORY IMPAIRMENT [None]
  - PAIN IN EXTREMITY [None]
  - THERAPEUTIC RESPONSE UNEXPECTED [None]
  - VISUAL ACUITY REDUCED [None]
